FAERS Safety Report 5335836-6 (Version None)
Quarter: 2007Q2

REPORT INFORMATION
  Report Type: 
  Country: None (occurrence: None)
  Receive Date: 20070320
  Receipt Date: 20061019
  Transmission Date: 20071010
  Serious: Yes (Other)
  Sender: FDA-Public Use
  Company Number: 148915USA

PATIENT
  Age: 63 Year
  Sex: Female
  Weight: 54.4316 kg

DRUGS (6)
  1. TAMOXIFEN CITRATE [Suspect]
     Indication: BREAST CANCER
     Dosage: 20 MG (10 MG, 2 IN 1 D), ORAL
     Route: 048
     Dates: start: 20060824
  2. ALENDRONATE SODIUM [Concomitant]
  3. FEXOFENADINE [Concomitant]
  4. LANSOPRAZOLE [Concomitant]
  5. IBUPROFEN [Concomitant]
  6. DICYCLOVERINE [Concomitant]

REACTIONS (3)
  - VISUAL DISTURBANCE [None]
  - VITREOUS DETACHMENT [None]
  - VITREOUS FLOATERS [None]
